FAERS Safety Report 20185617 (Version 1)
Quarter: 2021Q4

REPORT INFORMATION
  Report Type: Spontaneous
  Country: US (occurrence: US)
  Receive Date: 20211215
  Receipt Date: 20211215
  Transmission Date: 20220303
  Serious: Yes (Life-Threatening, Hospitalization)
  Sender: FDA-Public Use
  Company Number: US-JNJFOC-20211203635

PATIENT
  Age: 41 Year
  Sex: Male

DRUGS (2)
  1. TYLENOL [Suspect]
     Active Substance: ACETAMINOPHEN
     Indication: Pain
     Dosage: PATIENT SELF-INITIATED ACETAMINOPHEN 9000 MG FOR 2 DAYS (TOTAL DOSE 18000 MG); 1-1.5 GRAMS EVERY 3-4
     Route: 048
     Dates: start: 20031012, end: 20031014
  2. IBUPROFEN [Concomitant]
     Active Substance: IBUPROFEN
     Indication: Product used for unknown indication
     Route: 065

REACTIONS (13)
  - Acute hepatic failure [Unknown]
  - Acute kidney injury [Unknown]
  - Upper gastrointestinal haemorrhage [Recovered/Resolved]
  - Pneumonia [Unknown]
  - Staphylococcal infection [Recovered/Resolved]
  - Haematoma [Unknown]
  - Vascular pseudoaneurysm [Unknown]
  - Sinus disorder [Unknown]
  - Portal vein thrombosis [Unknown]
  - Oedematous pancreatitis [Unknown]
  - Hepatic steatosis [Unknown]
  - Product administration error [Unknown]
  - Accidental overdose [Unknown]
